FAERS Safety Report 8000517-7 (Version None)
Quarter: 2011Q4

REPORT INFORMATION
  Report Type: 
  Country: None (occurrence: None)
  Receive Date: 20111222
  Receipt Date: 20111219
  Transmission Date: 20120403
  Serious: No
  Sender: FDA-Public Use
  Company Number: US-BAYER-2011-122191

PATIENT
  Sex: Female

DRUGS (3)
  1. UNSPECFIED MEDICATIONS [Concomitant]
     Indication: EPILEPSY
  2. UNSPECFIED MEDICATIONS [Concomitant]
     Indication: CONVULSION
  3. AVELOX [Suspect]
     Indication: PNEUMONIA
     Dosage: 400 MG, QD
     Route: 048
     Dates: start: 20111201, end: 20111201

REACTIONS (2)
  - URTICARIA [None]
  - PRURITUS [None]
